FAERS Safety Report 9818622 (Version 1)
Quarter: 2014Q1

REPORT INFORMATION
  Report Type: Spontaneous
  Country: US (occurrence: US)
  Receive Date: 20140115
  Receipt Date: 20140115
  Transmission Date: 20141002
  Serious: Yes (Hospitalization, Other)
  Sender: FDA-Public Use
  Company Number: US-DYAX CORP.-2014DX000002

PATIENT
  Age: 58 Year
  Sex: Female
  Weight: 106.69 kg

DRUGS (2)
  1. KALBITOR [Suspect]
     Indication: HEREDITARY ANGIOEDEMA
     Route: 058
     Dates: start: 20140103, end: 20140103
  2. KALBITOR [Suspect]
     Route: 058
     Dates: start: 20131102

REACTIONS (5)
  - Loss of consciousness [Not Recovered/Not Resolved]
  - Aspiration [Not Recovered/Not Resolved]
  - Vomiting [Not Recovered/Not Resolved]
  - Rash papular [Not Recovered/Not Resolved]
  - Erythema [Not Recovered/Not Resolved]
